FAERS Safety Report 4958895-9 (Version None)
Quarter: 2006Q1

REPORT INFORMATION
  Report Type: 
  Country: None (occurrence: None)
  Receive Date: 20060324
  Receipt Date: 20060317
  Transmission Date: 20060701
  Serious: Yes (Other)
  Sender: FDA-Public Use
  Company Number: CHPA2006US02968

PATIENT
  Age: 75 Year
  Sex: Female
  Weight: 77.1 kg

DRUGS (1)
  1. EXCEDRIN EXTRA STRENGTH (NCH) (CAFFEINE CITRATE, ACETYLSALICYLIC ACID, [Suspect]
     Indication: BACK PAIN
     Dosage: 2 DF, SEVERAL TIMES A DAY, ORAL
     Route: 048

REACTIONS (4)
  - DRUG ABUSER [None]
  - DRUG HYPERSENSITIVITY [None]
  - RHINORRHOEA [None]
  - SWELLING FACE [None]
